FAERS Safety Report 17516768 (Version 1)
Quarter: 2020Q1

REPORT INFORMATION
  Report Type: Spontaneous
  Country: US (occurrence: US)
  Receive Date: 20200307
  Receipt Date: 20200307
  Transmission Date: 20200409
  Serious: No
  Sender: FDA-Public Use
  Company Number: None

PATIENT
  Age: 35 Year
  Sex: Male
  Weight: 92.25 kg

DRUGS (1)
  1. CREST 3D WHITE WHITENING THERAPY DEEP CLEAN CHARCOAL [Suspect]
     Active Substance: SODIUM FLUORIDE
     Indication: DENTAL DISORDER PROPHYLAXIS
     Dates: start: 20200229, end: 20200306

REACTIONS (4)
  - Gingival pain [None]
  - Burning sensation [None]
  - Haematoma [None]
  - Gingival discomfort [None]

NARRATIVE: CASE EVENT DATE: 20200306
